FAERS Safety Report 23016129 (Version 1)
Quarter: 2023Q4

REPORT INFORMATION
  Report Type: Spontaneous
  Country: JP (occurrence: None)
  Receive Date: 20231002
  Receipt Date: 20231002
  Transmission Date: 20240110
  Serious: Yes (Life-Threatening)
  Sender: FDA-Public Use
  Company Number: 2023A222242

PATIENT
  Sex: Female

DRUGS (2)
  1. FASLODEX [Suspect]
     Active Substance: FULVESTRANT
     Indication: Breast cancer female
     Route: 030
     Dates: start: 20230804, end: 20230818
  2. VERZENIO [Concomitant]
     Active Substance: ABEMACICLIB
     Dosage: DOSE UNKNOWN
     Route: 065
     Dates: start: 20230804, end: 20230901

REACTIONS (2)
  - Hepatic function abnormal [Not Recovered/Not Resolved]
  - Aspartate aminotransferase increased [Not Recovered/Not Resolved]

NARRATIVE: CASE EVENT DATE: 20230901
